FAERS Safety Report 14738552 (Version 3)
Quarter: 2018Q2

REPORT INFORMATION
  Report Type: Spontaneous
  Country: US (occurrence: US)
  Receive Date: 20180409
  Receipt Date: 20180523
  Transmission Date: 20180711
  Serious: Yes (Hospitalization, Other)
  Sender: FDA-Public Use
  Company Number: US-PFIZER INC-2018143234

PATIENT
  Age: 30 Year
  Sex: Female
  Weight: 66 kg

DRUGS (1)
  1. LYRICA [Suspect]
     Active Substance: PREGABALIN
     Indication: FIBROMYALGIA
     Dosage: 25 MG, 3X/DAY

REACTIONS (4)
  - Muscular weakness [Recovered/Resolved]
  - Pain in extremity [Recovered/Resolved]
  - Complication associated with device [Unknown]
  - Nerve injury [Unknown]

NARRATIVE: CASE EVENT DATE: 20180319
